FAERS Safety Report 24727470 (Version 1)
Quarter: 2024Q4

REPORT INFORMATION
  Report Type: Spontaneous
  Country: US (occurrence: None)
  Receive Date: 20241212
  Receipt Date: 20241212
  Transmission Date: 20250115
  Serious: Yes (Life-Threatening, Hospitalization, Other)
  Sender: Public
  Company Number: None

PATIENT
  Age: 4 Year
  Sex: Male
  Weight: 18.7 kg

DRUGS (1)
  1. GOLYTELY [Suspect]
     Active Substance: POLYETHYLENE GLYCOL 3350\POTASSIUM CHLORIDE\SODIUM BICARBONATE\SODIUM CHLORIDE\SODIUM SULFATE
     Indication: Colonic lavage
     Dosage: OTHER QUANTITY : 6000 ML;?OTHER FREQUENCY : 300ML/H - 48 H;?OTHER ROUTE : NG TUBE;?
     Route: 050
     Dates: start: 20241208, end: 20241210

REACTIONS (14)
  - Documented hypersensitivity to administered product [None]
  - Acne [None]
  - Lethargy [None]
  - Vomiting [None]
  - Vomiting [None]
  - Rash [None]
  - Choking [None]
  - Therapy cessation [None]
  - Swelling [None]
  - Blood glucose decreased [None]
  - Metabolic acidosis [None]
  - Ileus [None]
  - Product complaint [None]
  - Intentional product misuse to child [None]

NARRATIVE: CASE EVENT DATE: 20241209
